FAERS Safety Report 8424134-X (Version None)
Quarter: 2012Q2

REPORT INFORMATION
  Report Type: 
  Country: None (occurrence: None)
  Receive Date: 20120608
  Receipt Date: 20120314
  Transmission Date: 20120825
  Serious: No
  Sender: FDA-Public Use
  Company Number: US-ASTRAZENECA-2012SE14403

PATIENT
  Age: 45 Year
  Sex: Female

DRUGS (1)
  1. PULMICORT [Suspect]
     Indication: ASTHMA
     Route: 055

REACTIONS (8)
  - ASTHMA [None]
  - DRUG HYPERSENSITIVITY [None]
  - DYSPHONIA [None]
  - INTENTIONAL DRUG MISUSE [None]
  - EYE INJURY [None]
  - OFF LABEL USE [None]
  - INCORRECT DRUG ADMINISTRATION DURATION [None]
  - DRUG DOSE OMISSION [None]
